FAERS Safety Report 21016895 (Version 1)
Quarter: 2022Q2

REPORT INFORMATION
  Report Type: Spontaneous
  Country: US (occurrence: None)
  Receive Date: 20220627
  Receipt Date: 20220627
  Transmission Date: 20220721
  Serious: No
  Sender: FDA-Public Use
  Company Number: None

PATIENT
  Age: 88 Year
  Sex: Female
  Weight: 78.3 kg

DRUGS (17)
  1. FLUTICASONE [Suspect]
     Active Substance: FLUTICASONE
     Indication: Hypersensitivity
     Dosage: OTHER QUANTITY : 1 SPRAY(S);?OTHER ROUTE : 1 SPRAY IN EACH NOSTRIL EVERY AM;?
     Route: 050
  2. nebulizer twice a day [Concomitant]
  3. SYMBICORT [Concomitant]
     Active Substance: BUDESONIDE\FORMOTEROL FUMARATE DIHYDRATE
  4. ALBUTEROL [Concomitant]
     Active Substance: ALBUTEROL
  5. UNSPECIFIED INGREDIENT [Concomitant]
     Active Substance: UNSPECIFIED INGREDIENT
  6. AMLODIPINE [Concomitant]
  7. IRBESARTAN [Concomitant]
     Active Substance: IRBESARTAN
  8. VITAMIN D3 [Concomitant]
     Active Substance: CHOLECALCIFEROL
  9. VITAMIN B12 [Concomitant]
     Active Substance: CYANOCOBALAMIN
  10. VITAMINS [Concomitant]
     Active Substance: VITAMINS
  11. FISH OIL [Concomitant]
     Active Substance: FISH OIL
  12. CHONDROITIN [Concomitant]
  13. CALTRATE [Concomitant]
     Active Substance: CALCIUM CARBONATE
  14. POTASSIUM [Concomitant]
  15. ALLEGRA [Concomitant]
     Active Substance: FEXOFENADINE HYDROCHLORIDE
  16. MUCINEX [Concomitant]
     Active Substance: GUAIFENESIN
  17. MINERALS\VITAMINS [Concomitant]
     Active Substance: MINERALS\VITAMINS

REACTIONS (2)
  - Photopsia [None]
  - Cataract [None]

NARRATIVE: CASE EVENT DATE: 20220415
